FAERS Safety Report 4892133-0 (Version None)
Quarter: 2006Q1

REPORT INFORMATION
  Report Type: 
  Country: None (occurrence: None)
  Receive Date: 20060124
  Receipt Date: 20051109
  Transmission Date: 20060701
  Serious: No
  Sender: FDA-Public Use
  Company Number: MK200511-0151-1

PATIENT
  Age: 31 Year
  Sex: Male

DRUGS (1)
  1. NEUTROSPEC [Suspect]
     Indication: STAPHYLOCOCCAL SEPSIS
     Dosage: 15 MCI, ONE TIME, IV
     Route: 042
     Dates: start: 20051005, end: 20051005

REACTIONS (4)
  - CHEST PAIN [None]
  - DYSPNOEA [None]
  - NAUSEA [None]
  - VOMITING [None]
